FAERS Safety Report 6806664-7 (Version None)
Quarter: 2010Q2

REPORT INFORMATION
  Report Type: 
  Country: None (occurrence: None)
  Receive Date: 20100629
  Receipt Date: 20080428
  Transmission Date: 20101027
  Serious: No
  Sender: FDA-Public Use
  Company Number: US-PFIZER INC-2008032877

PATIENT
  Sex: Male
  Weight: 92.08 kg

DRUGS (11)
  1. ARTHROTEC [Suspect]
     Indication: ARTHRITIS
     Dosage: 75/0.2MG;TDD:150/0.4MG
  2. SYNTHROID [Concomitant]
  3. DIGITEK [Concomitant]
  4. ATENOLOL [Concomitant]
  5. VALSARTAN [Concomitant]
  6. STARLIX [Concomitant]
  7. GLYBURIDE [Concomitant]
     Indication: TYPE 2 DIABETES MELLITUS
  8. TRICOR [Concomitant]
  9. GABAPENTIN [Concomitant]
  10. SIMVASTATIN [Concomitant]
  11. ALL OTHER THERAPEUTIC PRODUCTS [Concomitant]

REACTIONS (2)
  - COUGH [None]
  - PRODUCT QUALITY ISSUE [None]
